FAERS Safety Report 6233606-8 (Version None)
Quarter: 2009Q2

REPORT INFORMATION
  Report Type: 
  Country: None (occurrence: None)
  Receive Date: 20090617
  Receipt Date: 20090605
  Transmission Date: 20091009
  Serious: Yes (Other)
  Sender: FDA-Public Use
  Company Number: US-PFIZER INC-2009225368

PATIENT
  Sex: Female
  Weight: 90.718 kg

DRUGS (7)
  1. CHANTIX [Suspect]
     Indication: SMOKING CESSATION THERAPY
     Dosage: UNK
     Dates: start: 20090101, end: 20090501
  2. FENTANYL [Concomitant]
     Dosage: 50 MG, UNK
  3. PROZAC [Concomitant]
     Dosage: 60 MG, UNK
  4. SYNTHROID [Concomitant]
     Dosage: 0.5 MG, UNK
  5. MILK THISTLE [Concomitant]
     Dosage: UNK
  6. VITAMINS [Concomitant]
     Dosage: UNK
  7. ELAVIL [Concomitant]
     Dosage: 25 MG, UNK
     Dates: end: 20090501

REACTIONS (5)
  - ASPIRATION [None]
  - CAROTID ARTERY OCCLUSION [None]
  - DYSARTHRIA [None]
  - DYSPHAGIA [None]
  - MACROGLOSSIA [None]
